FAERS Safety Report 7688120-X (Version None)
Quarter: 2011Q3

REPORT INFORMATION
  Report Type: 
  Country: None (occurrence: None)
  Receive Date: 20110817
  Receipt Date: 20110805
  Transmission Date: 20111222
  Serious: Yes (Hospitalization)
  Sender: FDA-Public Use
  Company Number: DE-ELI_LILLY_AND_COMPANY-DE201108002445

PATIENT
  Sex: Female

DRUGS (5)
  1. VITAMIN D [Concomitant]
     Dosage: UNK
  2. CYMBALTA [Suspect]
     Dosage: 60 MG, UNKNOWN
     Route: 048
     Dates: start: 20110521
  3. ATACAND [Concomitant]
     Dosage: UNK, BID
  4. CALCIUM CARBONATE [Concomitant]
     Dosage: UNK
  5. CYMBALTA [Suspect]
     Indication: DEPRESSION
     Dosage: 30 MG, UNKNOWN
     Route: 048
     Dates: start: 20110516, end: 20110520

REACTIONS (2)
  - VISUAL IMPAIRMENT [None]
  - ACCOMMODATION DISORDER [None]
